FAERS Safety Report 7380384-5 (Version None)
Quarter: 2011Q1

REPORT INFORMATION
  Report Type: 
  Country: None (occurrence: None)
  Receive Date: 20110329
  Receipt Date: 20110322
  Transmission Date: 20110831
  Serious: Yes (Hospitalization)
  Sender: FDA-Public Use
  Company Number: IT-ROCHE-765338

PATIENT
  Sex: Male
  Weight: 80 kg

DRUGS (9)
  1. FLUOROURACIL [Suspect]
     Route: 042
     Dates: start: 20110208
  2. VERAPAMIL [Concomitant]
  3. GLICLAZIDE [Concomitant]
  4. BEVACIZUMAB [Suspect]
     Dosage: LAST DOSE PRIOR TO TO SAE:  08 MARCH 2011.  DOSAGE FORM:  VIALS
     Route: 042
     Dates: start: 20110208
  5. FOLINIC ACID [Suspect]
     Dosage: LAST DOSE PRIOR TO TO SAE:  08 MARCH 2011.  DOSAGE FORM:  VIALS
     Route: 042
     Dates: start: 20110208
  6. PROVISACOR [Concomitant]
  7. IRINOTECAN [Suspect]
     Dosage: LAST DOSE PRIOR TO TO SAE:  08 MARCH 2011.  DOSAGE FORM:  VIALS
     Route: 042
     Dates: start: 20110208
  8. ASPIRIN [Concomitant]
  9. INSULINA [Concomitant]
     Dosage: START DATE: 2011.

REACTIONS (2)
  - CEREBROVASCULAR ACCIDENT [None]
  - CEREBRAL ISCHAEMIA [None]
